FAERS Safety Report 7305161-2 (Version None)
Quarter: 2011Q1

REPORT INFORMATION
  Report Type: 
  Country: None (occurrence: None)
  Receive Date: 20110222
  Receipt Date: 20110218
  Transmission Date: 20110831
  Serious: Yes (Life-Threatening, Hospitalization, Other)
  Sender: FDA-Public Use
  Company Number: IE-ABBOTT-11P-229-0695542-00

PATIENT
  Sex: Male
  Weight: 88 kg

DRUGS (2)
  1. HUMIRA [Suspect]
     Indication: PSORIASIS
     Route: 058
     Dates: start: 20101001
  2. ESOMEPRAZOLE [Concomitant]
     Indication: PRODUCT USED FOR UNKNOWN INDICATION
     Route: 048

REACTIONS (5)
  - CARDIAC ARREST [None]
  - VENTRICULAR DYSFUNCTION [None]
  - PERICARDITIS [None]
  - ACUTE MYOCARDIAL INFARCTION [None]
  - VENTRICULAR FIBRILLATION [None]
